FAERS Safety Report 9747171 (Version 2)
Quarter: 2013Q4

REPORT INFORMATION
  Report Type: Spontaneous
  Country: RU (occurrence: RU)
  Receive Date: 20131211
  Receipt Date: 20131224
  Transmission Date: 20140711
  Serious: Yes (Other)
  Sender: FDA-Public Use
  Company Number: RU-RANBAXY-2013R3-75943

PATIENT
  Age: 25 Year
  Sex: Female
  Weight: 60 kg

DRUGS (1)
  1. SOTRET [Suspect]
     Indication: ACNE CONGLOBATA
     Dosage: 10 MG, TID
     Route: 048
     Dates: start: 201303, end: 201306

REACTIONS (1)
  - Blood bilirubin increased [Recovering/Resolving]
